FAERS Safety Report 9213230 (Version 1)
Quarter: 2013Q1

REPORT INFORMATION
  Report Type: Spontaneous
  Country: US (occurrence: None)
  Receive Date: 20120820
  Receipt Date: 20120820
  Transmission Date: 20140127
  Serious: No
  Sender: FDA-Public Use
  Company Number: 1000030809

PATIENT
  Age: 41 Year
  Sex: Female

DRUGS (3)
  1. VIIBRYD [Suspect]
     Indication: DEPRESSION
     Dosage: 10 MG (10 MG, 1 IN 1 D)
     Dates: start: 201203, end: 2012
  2. SUBBOXONE (TEMGESIC-NX) [Concomitant]
  3. MOTRIN (IBUPROFEN)-(IBUPROFEN) [Concomitant]

REACTIONS (4)
  - Oedema peripheral [None]
  - Joint swelling [None]
  - Feeling hot [None]
  - Varicose vein [None]
